FAERS Safety Report 16001229 (Version 2)
Quarter: 2019Q3

REPORT INFORMATION
  Report Type: Spontaneous
  Country: ES (occurrence: ES)
  Receive Date: 20190225
  Receipt Date: 20190813
  Transmission Date: 20191004
  Serious: Yes (Death, Other)
  Sender: FDA-Public Use
  Company Number: ES-TEIKOKU PHARMA USA-TPU2019-00145

PATIENT
  Age: 84 Year
  Sex: Male

DRUGS (7)
  1. VERSATIS [Suspect]
     Active Substance: LIDOCAINE
     Indication: INTERCOSTAL NEURALGIA
     Route: 003
  2. APIXABAN [Concomitant]
     Active Substance: APIXABAN
  3. METAMIZOLE [Concomitant]
     Active Substance: METAMIZOLE
  4. VERSATIS [Suspect]
     Active Substance: LIDOCAINE
     Indication: OSTEOARTHRITIS
     Route: 003
  5. FUROSEMIDE. [Concomitant]
     Active Substance: FUROSEMIDE
  6. TAMSULOISIN [Concomitant]
  7. CAPTOPRIL. [Concomitant]
     Active Substance: CAPTOPRIL

REACTIONS (3)
  - Death [None]
  - Blood urine [Recovered/Resolved]
  - Off label use [Unknown]
